FAERS Safety Report 6977298-9 (Version None)
Quarter: 2010Q3

REPORT INFORMATION
  Report Type: 
  Country: None (occurrence: None)
  Receive Date: 20100910
  Receipt Date: 20100831
  Transmission Date: 20110219
  Serious: Yes (Death, Other)
  Sender: FDA-Public Use
  Company Number: US-BAYER-201038662GPV

PATIENT
  Age: 45 Year
  Sex: Male
  Weight: 160 kg

DRUGS (2)
  1. CIPROFLOXACIN [Suspect]
     Indication: OSTEOMYELITIS
     Dosage: APPROX 30 DAYS
     Route: 042
  2. VASOPRESSORS [Concomitant]

REACTIONS (5)
  - ACINETOBACTER INFECTION [None]
  - COMA SCALE ABNORMAL [None]
  - LIVER FUNCTION TEST ABNORMAL [None]
  - SEPSIS [None]
  - SUBDIAPHRAGMATIC ABSCESS [None]
